FAERS Safety Report 7543373-3 (Version None)
Quarter: 2011Q2

REPORT INFORMATION
  Report Type: 
  Country: None (occurrence: None)
  Receive Date: 20110613
  Receipt Date: 20110601
  Transmission Date: 20111010
  Serious: Yes (Hospitalization)
  Sender: FDA-Public Use
  Company Number: US-ACTELION-A-US2011-48995

PATIENT

DRUGS (5)
  1. LASIX [Concomitant]
  2. EPOPROSTENOL SODIUM [Suspect]
     Indication: PULMONARY ARTERIAL HYPERTENSION
     Dosage: 30 NG/KG, PER MIN
     Route: 042
     Dates: start: 20101209
  3. SILDENAFIL CITRATE [Concomitant]
  4. COUMADIN [Concomitant]
  5. AMBRISENTAN [Concomitant]

REACTIONS (9)
  - HAEMARTHROSIS [None]
  - FLUID OVERLOAD [None]
  - RIGHT VENTRICULAR FAILURE [None]
  - CELLULITIS [None]
  - FALL [None]
  - FATIGUE [None]
  - SYNCOPE [None]
  - JOINT SWELLING [None]
  - HYPERKALAEMIA [None]
